FAERS Safety Report 9927287 (Version 1)
Quarter: 2014Q1

REPORT INFORMATION
  Report Type: Spontaneous
  Country: US (occurrence: US)
  Receive Date: 20140226
  Receipt Date: 20140226
  Transmission Date: 20141002
  Serious: Yes (Other)
  Sender: FDA-Public Use
  Company Number: US-RB-063823-14

PATIENT
  Age: 0 None
  Sex: Male

DRUGS (2)
  1. SUBUTEX [Suspect]
     Indication: DRUG DEPENDENCE
     Route: 064
     Dates: start: 2011, end: 20111210
  2. NICOTINE [Suspect]
     Indication: NICOTINE DEPENDENCE
     Dosage: MOTHER SMOKING 5 CIGARETTES DAILY DURING 36.5 WEEKS OF PREGNANCY
     Route: 064
     Dates: start: 201103, end: 20111210

REACTIONS (4)
  - Foetal exposure during pregnancy [Recovered/Resolved]
  - Premature baby [Recovered/Resolved]
  - Low birth weight baby [Recovered/Resolved]
  - Feeding disorder neonatal [Recovered/Resolved]
